FAERS Safety Report 10883730 (Version 1)
Quarter: 2015Q1

REPORT INFORMATION
  Report Type: Spontaneous
  Country: FI (occurrence: FI)
  Receive Date: 20150303
  Receipt Date: 20150303
  Transmission Date: 20150721
  Serious: Yes (Other)
  Sender: FDA-Public Use
  Company Number: FI-AMGEN-FINSP2015018103

PATIENT
  Sex: Female
  Weight: 66 kg

DRUGS (2)
  1. PROLIA [Suspect]
     Active Substance: DENOSUMAB
     Indication: OSTEOPOROSIS POSTMENOPAUSAL
     Dosage: 60 MG, Q6MO
     Route: 065
     Dates: start: 201406
  2. FEMIANE [Concomitant]
     Active Substance: ETHINYL ESTRADIOL\GESTODENE
     Indication: PROPHYLAXIS

REACTIONS (9)
  - Gait disturbance [Unknown]
  - Musculoskeletal disorder [Unknown]
  - Joint crepitation [Unknown]
  - Dry skin [Not Recovered/Not Resolved]
  - Skin exfoliation [Not Recovered/Not Resolved]
  - Breast cancer [Unknown]
  - Mobility decreased [Unknown]
  - Pruritus [Not Recovered/Not Resolved]
  - Joint swelling [Unknown]

NARRATIVE: CASE EVENT DATE: 20150224
